FAERS Safety Report 8440210-X (Version None)
Quarter: 2012Q2

REPORT INFORMATION
  Report Type: 
  Country: None (occurrence: None)
  Receive Date: 20120615
  Receipt Date: 20120612
  Transmission Date: 20120825
  Serious: No
  Sender: FDA-Public Use
  Company Number: US-PFIZER INC-2012099530

PATIENT
  Sex: Male

DRUGS (3)
  1. CYTOTEC [Suspect]
     Dosage: UNK
  2. CELEBREX [Suspect]
     Dosage: UNK
  3. PRISTIQ [Suspect]
     Dosage: UNK

REACTIONS (3)
  - DYSARTHRIA [None]
  - ASTHMA [None]
  - SEASONAL ALLERGY [None]
